FAERS Safety Report 22337689 (Version 1)
Quarter: 2023Q2

REPORT INFORMATION
  Report Type: Spontaneous
  Country: US (occurrence: US)
  Receive Date: 20230518
  Receipt Date: 20230518
  Transmission Date: 20230722
  Serious: Yes (Life-Threatening, Other)
  Sender: FDA-Public Use
  Company Number: US-PFIZER INC-202300193887

PATIENT
  Age: 24 Year
  Sex: Male

DRUGS (3)
  1. AZITHROMYCIN [Suspect]
     Active Substance: AZITHROMYCIN
     Indication: Ventriculo-peritoneal shunt
     Dosage: UNK
     Route: 042
  2. AMIKACIN [Concomitant]
     Active Substance: AMIKACIN
     Indication: Ventriculo-peritoneal shunt
     Dosage: UNK
     Route: 037
  3. CEFOXITIN [Concomitant]
     Active Substance: CEFOXITIN SODIUM
     Indication: Ventriculo-peritoneal shunt
     Dosage: UNK

REACTIONS (1)
  - Electrocardiogram QT prolonged [Unknown]
